FAERS Safety Report 11893466 (Version 5)
Quarter: 2016Q2

REPORT INFORMATION
  Report Type: Spontaneous
  Country: US (occurrence: US)
  Receive Date: 20160106
  Receipt Date: 20160525
  Transmission Date: 20160815
  Serious: Yes (Other)
  Sender: FDA-Public Use
  Company Number: US-TEVA-622662USA

PATIENT
  Age: 40 Year
  Sex: Female

DRUGS (2)
  1. ZECUITY [Suspect]
     Active Substance: SUMATRIPTAN SUCCINATE
     Route: 062
     Dates: start: 20151227, end: 20151227
  2. ZECUITY [Suspect]
     Active Substance: SUMATRIPTAN SUCCINATE
     Indication: MIGRAINE
     Dosage: 6.5 MG/4 HOURS
     Route: 062
     Dates: start: 20151213, end: 20151213

REACTIONS (10)
  - Drug hypersensitivity [Recovered/Resolved]
  - Application site burn [Recovered/Resolved]
  - Product adhesion issue [Recovered/Resolved]
  - Application site pruritus [Recovered/Resolved]
  - Application site scar [Recovered/Resolved]
  - Application site urticaria [Recovered/Resolved]
  - Application site exfoliation [Recovered/Resolved]
  - Application site pain [Recovered/Resolved]
  - Application site papules [Recovered/Resolved]
  - Application site erythema [Recovered/Resolved]

NARRATIVE: CASE EVENT DATE: 20151213
